FAERS Safety Report 8568566 (Version 4)
Quarter: 2014Q1

REPORT INFORMATION
  Report Type: Report from Study
  Country: US (occurrence: US)
  Receive Date: 20120518
  Receipt Date: 20140121
  Transmission Date: 20141002
  Serious: Yes (Hospitalization)
  Sender: FDA-Public Use
  Company Number: US-PFIZER INC-2012114895

PATIENT
  Age: 72 Year
  Sex: Male
  Weight: 67.4 kg

DRUGS (16)
  1. CISPLATIN [Suspect]
     Indication: HEAD AND NECK CANCER
     Dosage: 91 MG, EVERY 3 WEEKS
     Route: 042
     Dates: start: 20120130
  2. ERBITUX [Suspect]
     Indication: HEAD AND NECK CANCER
     Dosage: 455 MG, WEEKLY
     Route: 042
     Dates: start: 20120109, end: 20120416
  3. ERBITUX [Suspect]
     Dosage: 455 MG, WEEKLY (1/W)
     Route: 042
     Dates: start: 20120507
  4. 5-FU [Suspect]
     Indication: HEAD AND NECK CANCER
     Dosage: 910 MG, PER DAY FOR 4DAYS Q 3 WEEKS
     Route: 042
     Dates: start: 20120130
  5. LORAZEPAM [Concomitant]
     Indication: NAUSEA
     Dosage: UNK
     Dates: start: 20120202
  6. LORAZEPAM [Concomitant]
     Indication: VOMITING
  7. MAGNESIUM OXIDE [Concomitant]
     Indication: HYPOMAGNESAEMIA
     Dosage: UNK
     Dates: start: 20120130
  8. DEXAMETHASONE [Concomitant]
     Indication: NAUSEA
     Dosage: UNK
     Dates: start: 20120130
  9. ONDANSETRON [Concomitant]
     Indication: NAUSEA
     Dosage: UNK
     Dates: start: 20120130
  10. MINOCYCLINE HYDROCHLORIDE [Concomitant]
     Indication: RASH
     Dosage: UNK
     Dates: start: 20120117
  11. PENTOXIFYLLINE [Concomitant]
     Indication: CARDIOVASCULAR INSUFFICIENCY
     Dosage: UNK
     Dates: start: 20120109
  12. METFORMIN [Concomitant]
     Indication: DIABETES MELLITUS
     Dosage: UNK
  13. TRAZODONE [Concomitant]
     Indication: DEPRESSION
     Dosage: UNK
     Dates: start: 20111026
  14. TRAZODONE [Concomitant]
     Indication: INSOMNIA
  15. ROSUVASTATIN [Concomitant]
     Indication: BLOOD CHOLESTEROL ABNORMAL
     Dosage: UNK
     Dates: start: 20071226
  16. METOPROLOL/HCTZ [Concomitant]
     Indication: BLOOD PRESSURE ABNORMAL
     Dosage: UNK
     Dates: start: 20071226

REACTIONS (3)
  - Syncope [Recovered/Resolved]
  - Dysphagia [Recovered/Resolved]
  - Dehydration [Recovered/Resolved]
